FAERS Safety Report 12683665 (Version 1)
Quarter: 2016Q3

REPORT INFORMATION
  Report Type: Spontaneous
  Country: FR (occurrence: FR)
  Receive Date: 20160825
  Receipt Date: 20160825
  Transmission Date: 20161109
  Serious: Yes (Life-Threatening)
  Sender: FDA-Public Use
  Company Number: FR-SA-2016SA152296

PATIENT
  Age: 76 Year
  Sex: Male

DRUGS (9)
  1. METFORMIN [Suspect]
     Active Substance: METFORMIN HYDROCHLORIDE
     Route: 048
     Dates: end: 20160630
  2. NEBIVOLOL. [Suspect]
     Active Substance: NEBIVOLOL
     Route: 048
     Dates: end: 20160630
  3. OFLOCET [Suspect]
     Active Substance: OFLOXACIN
     Route: 065
     Dates: start: 201606, end: 20160630
  4. PREVISCAN [Suspect]
     Active Substance: FLUINDIONE
     Route: 048
     Dates: end: 20160630
  5. LISINOPRIL. [Suspect]
     Active Substance: LISINOPRIL
     Route: 048
     Dates: end: 20160630
  6. FUROSEMIDE. [Suspect]
     Active Substance: FUROSEMIDE
     Route: 048
     Dates: end: 20160630
  7. ZOXAN [Concomitant]
     Active Substance: DOXAZOSIN MESYLATE
     Route: 065
  8. AVODART [Concomitant]
     Active Substance: DUTASTERIDE
     Route: 065
  9. AMAREL [Suspect]
     Active Substance: GLIMEPIRIDE
     Route: 048
     Dates: end: 20160630

REACTIONS (4)
  - Metabolic acidosis [Recovered/Resolved]
  - Acute kidney injury [Recovered/Resolved]
  - Hyperkalaemia [Recovered/Resolved]
  - Hyponatraemia [Recovered/Resolved]

NARRATIVE: CASE EVENT DATE: 20160630
